FAERS Safety Report 15674530 (Version 1)
Quarter: 2018Q4

REPORT INFORMATION
  Report Type: Spontaneous
  Country: US (occurrence: US)
  Receive Date: 20181130
  Receipt Date: 20181130
  Transmission Date: 20190205
  Serious: Yes (Hospitalization)
  Sender: FDA-Public Use
  Company Number: US-HIKMA PHARMACEUTICALS USA INC.-US-H14001-18-08473

PATIENT
  Age: 16 Year
  Sex: Female

DRUGS (1)
  1. LITHIUM. [Suspect]
     Active Substance: LITHIUM
     Indication: BIPOLAR DISORDER
     Route: 065

REACTIONS (11)
  - Confusional state [Unknown]
  - Electrocardiogram PR prolongation [Unknown]
  - Clonus [Unknown]
  - Encephalopathy [Unknown]
  - Ataxia [Unknown]
  - Agitation [Unknown]
  - Mental status changes [Unknown]
  - Toxicity to various agents [Recovering/Resolving]
  - Muscle rigidity [Unknown]
  - Dysarthria [Unknown]
  - Normocytic anaemia [Unknown]
